FAERS Safety Report 20665417 (Version 1)
Quarter: 2022Q2

REPORT INFORMATION
  Report Type: Report from Study
  Country: EG (occurrence: EG)
  Receive Date: 20220402
  Receipt Date: 20220402
  Transmission Date: 20220721
  Serious: Yes (Other)
  Sender: FDA-Public Use
  Company Number: EG-NOVARTISPH-NVSC2022EG069766

PATIENT
  Age: 73 Year
  Sex: Male

DRUGS (8)
  1. ENTRESTO [Suspect]
     Active Substance: SACUBITRIL\VALSARTAN
     Indication: Cardiac failure
     Dosage: 50 MG 1 TAB , BID, 1 TAB IN THE MORNING.
     Route: 048
     Dates: start: 20200501, end: 20220324
  2. ENTRESTO [Suspect]
     Active Substance: SACUBITRIL\VALSARTAN
     Dosage: 100 MG, 1 TAB IN THE EVENING
     Route: 065
     Dates: start: 20220324
  3. VILDAGLIPTIN [Concomitant]
     Active Substance: VILDAGLIPTIN
     Indication: Diabetes mellitus
     Dosage: 1 DOSAGE FORM, QD ( 1- 50MG 1TAB/DAY), 1-1 MONTH AGO
     Route: 065
  4. IVABRADINE [Concomitant]
     Active Substance: IVABRADINE
     Indication: Heart rate
     Dosage: 1 DOSAGE FORM, BID
     Route: 065
     Dates: start: 202005
  5. EXAMIDE [Concomitant]
     Indication: Polyuria
     Dosage: 2 DOSAGE FORM, BID
     Route: 065
     Dates: start: 202005
  6. CARFALONE [Concomitant]
     Indication: Cardiac failure
     Dosage: 1 DOSAGE FORM, QD
     Route: 065
     Dates: start: 202005
  7. CORDARONE [Concomitant]
     Active Substance: AMIODARONE HYDROCHLORIDE
     Indication: Heart rate
     Dosage: 1 DOSAGE FORM, QD
     Route: 065
     Dates: start: 202203
  8. JARDIANCE [Concomitant]
     Active Substance: EMPAGLIFLOZIN
     Indication: Polyuria
     Dosage: 1 DOSAGE FORM, QD, 2:3 WEEKS AGO
     Route: 065

REACTIONS (15)
  - Blood pressure increased [Recovered/Resolved]
  - Diabetes mellitus [Not Recovered/Not Resolved]
  - Blood glucose increased [Recovered/Resolved]
  - Cardiomyopathy [Not Recovered/Not Resolved]
  - COVID-19 pneumonia [Recovered/Resolved]
  - Pyrexia [Recovered/Resolved]
  - Cough [Recovered/Resolved]
  - Dysuria [Recovered/Resolved]
  - Blood urea increased [Unknown]
  - Blood creatinine increased [Unknown]
  - Oedema [Recovered/Resolved]
  - Renal failure [Recovered/Resolved]
  - Product dose omission issue [Unknown]
  - Hypotension [Not Recovered/Not Resolved]
  - Inappropriate schedule of product administration [Unknown]

NARRATIVE: CASE EVENT DATE: 20211201
